FAERS Safety Report 7617869-X (Version None)
Quarter: 2011Q3

REPORT INFORMATION
  Report Type: 
  Country: None (occurrence: None)
  Receive Date: 20110718
  Receipt Date: 20110712
  Transmission Date: 20111222
  Serious: No
  Sender: FDA-Public Use
  Company Number: US-BAYER-2011-050922

PATIENT
  Age: 26 Year
  Sex: Female
  Weight: 73.469 kg

DRUGS (3)
  1. NUVARING [Suspect]
     Indication: CONTRACEPTION
     Dosage: UNK
     Dates: start: 20110401
  2. MIRENA [Suspect]
     Indication: CONTRACEPTION
     Dosage: 20 MCG/24HR, CONT
     Route: 015
     Dates: start: 20091001, end: 20110425
  3. CELEXA [Concomitant]
     Indication: ANXIETY
     Dosage: 20 MG, UNK
     Route: 048

REACTIONS (3)
  - DEVICE EXPULSION [None]
  - MEDICAL DEVICE DISCOMFORT [None]
  - PREGNANCY WITH CONTRACEPTIVE DEVICE [None]
